FAERS Safety Report 5990008-7 (Version None)
Quarter: 2008Q4

REPORT INFORMATION
  Report Type: 
  Country: None (occurrence: None)
  Receive Date: 20081209
  Receipt Date: 20081209
  Transmission Date: 20090506
  Serious: Yes (Life-Threatening)
  Sender: FDA-Public Use
  Company Number: None

PATIENT
  Age: 64 Year
  Sex: Female
  Weight: 58.514 kg

DRUGS (5)
  1. FENTANYL-50 [Suspect]
     Indication: PAIN
     Dosage: 50MCG/HR OR 75MCG/HR? Q 3 DAYS TRANSDERMAL
     Route: 062
     Dates: start: 20081124, end: 20081203
  2. AMITRIPTYLINE HCL [Concomitant]
  3. FIORICET [Concomitant]
  4. PERCOCET [Concomitant]
  5. AMBIEN [Concomitant]

REACTIONS (2)
  - SYNCOPE [None]
  - UNRESPONSIVE TO STIMULI [None]
